FAERS Safety Report 21343867 (Version 1)
Quarter: 2022Q3

REPORT INFORMATION
  Report Type: Spontaneous
  Country: GB (occurrence: GB)
  Receive Date: 20220916
  Receipt Date: 20220916
  Transmission Date: 20221027
  Serious: Yes (Disabling)
  Sender: FDA-Public Use
  Company Number: GB-002147023-NVSC2022GB199467

PATIENT
  Age: 86 Year
  Sex: Female

DRUGS (1)
  1. CLARITHROMYCIN [Suspect]
     Active Substance: CLARITHROMYCIN
     Indication: Product used for unknown indication
     Dosage: 2 DOSAGE FORMS DAILY; 2 DOSAGE FORM, QD (FOR 5 DAYS)
     Route: 065

REACTIONS (3)
  - Hypokinesia [Unknown]
  - Acidosis [Unknown]
  - Product prescribing error [Unknown]

NARRATIVE: CASE EVENT DATE: 20220830
